FAERS Safety Report 26182723 (Version 1)
Quarter: 2025Q4

REPORT INFORMATION
  Report Type: Spontaneous
  Country: US (occurrence: US)
  Receive Date: 20251221
  Receipt Date: 20251221
  Transmission Date: 20260117
  Serious: No
  Sender: IPSEN BIOPHARMACEUTICALS, INC.
  Company Number: US-IPSEN Group, Research and Development-2025-30569

PATIENT
  Age: 09 Year
  Sex: Male
  Weight: 20 kg

DRUGS (3)
  1. INCRELEX [Suspect]
     Active Substance: MECASERMIN
     Indication: Short stature
  2. INCRELEX [Suspect]
     Active Substance: MECASERMIN
     Indication: Failure to thrive
  3. INCRELEX [Suspect]
     Active Substance: MECASERMIN
     Indication: Off label use

REACTIONS (3)
  - Injection site pain [Recovered/Resolved]
  - Product use in unapproved indication [Unknown]
  - Refusal of treatment by patient [Unknown]
